FAERS Safety Report 19694588 (Version 10)
Quarter: 2021Q4

REPORT INFORMATION
  Report Type: Report from Study
  Country: CH (occurrence: CH)
  Receive Date: 20210812
  Receipt Date: 20211222
  Transmission Date: 20220303
  Serious: Yes (Hospitalization)
  Sender: FDA-Public Use
  Company Number: NVSC2021CH178372

PATIENT
  Age: 62 Year
  Sex: Female
  Weight: 51.5 kg

DRUGS (42)
  1. NAPORAFENIB [Suspect]
     Active Substance: NAPORAFENIB
     Indication: Metastatic malignant melanoma
     Dosage: 400 MG, BID
     Route: 048
     Dates: start: 20210714
  2. TRAMETINIB [Suspect]
     Active Substance: TRAMETINIB
     Indication: Metastatic malignant melanoma
     Dosage: 0.5 MG, QD
     Route: 048
     Dates: start: 20210714
  3. FRESUBIN JUCY DRINK [Concomitant]
     Indication: Malnutrition
     Dosage: UNK
     Route: 065
     Dates: start: 20210706
  4. GAVISCON [Concomitant]
     Active Substance: ALUMINUM HYDROXIDE\MAGNESIUM CARBONATE
     Indication: Gastrooesophageal reflux disease
     Dosage: UNK
     Route: 065
     Dates: start: 20210709
  5. SODIUM PICOSULFATE [Concomitant]
     Active Substance: SODIUM PICOSULFATE
     Indication: Constipation
     Dosage: UNK
     Route: 065
     Dates: start: 20210712
  6. CALCIUM\CHOLECALCIFEROL [Concomitant]
     Active Substance: CALCIUM\CHOLECALCIFEROL
     Indication: Malnutrition
     Dosage: UNK
     Route: 065
     Dates: start: 20210713
  7. MINERALS\VITAMINS [Concomitant]
     Active Substance: MINERALS\VITAMINS
     Indication: Malnutrition
     Dosage: UNK
     Route: 065
     Dates: start: 20210713
  8. FREKA-CLYSS [Concomitant]
     Indication: Constipation
     Dosage: UNK
     Route: 065
     Dates: start: 20210713
  9. PASPERTIN [Concomitant]
     Indication: Ascites
     Dosage: UNK
     Route: 065
     Dates: start: 20210705
  10. MINERAL OIL\PHENOLPHTHALEIN [Concomitant]
     Active Substance: MINERAL OIL\PHENOLPHTHALEIN
     Indication: Constipation
     Dosage: UNK
     Route: 065
     Dates: start: 20210713
  11. HERBALS [Concomitant]
     Active Substance: HERBALS
     Indication: Constipation
     Dosage: UNK
     Route: 065
     Dates: start: 20210713
  12. PREDNISONE [Concomitant]
     Active Substance: PREDNISONE
     Indication: Ascites
     Dosage: UNK
     Route: 065
     Dates: start: 20210714
  13. PHOSCAP [Concomitant]
     Indication: Hypophosphataemia
     Dosage: UNK
     Route: 065
     Dates: start: 20210717, end: 20210726
  14. BETNESOL [Concomitant]
     Indication: Oral discomfort
     Dosage: UNK
     Route: 065
     Dates: start: 20210722, end: 20210804
  15. HYALURONATE SODIUM [Concomitant]
     Active Substance: HYALURONATE SODIUM
     Indication: Visual impairment
     Dosage: UNK
     Route: 065
     Dates: start: 20210723
  16. DEXPANTHENOL\HYALURONATE SODIUM [Concomitant]
     Active Substance: DEXPANTHENOL\HYALURONATE SODIUM
     Indication: Visual impairment
     Dosage: UNK
     Route: 065
     Dates: start: 20210723
  17. RHUBARB\SALICYLIC ACID [Concomitant]
     Active Substance: RHUBARB\SALICYLIC ACID
     Indication: Oral discomfort
     Dosage: UNK
     Route: 065
     Dates: start: 20210717, end: 20210804
  18. KENACORT A ORABASE [Concomitant]
     Indication: Oral discomfort
     Dosage: UNK
     Route: 065
     Dates: start: 20210719, end: 20210804
  19. ELIDEL [Concomitant]
     Active Substance: PIMECROLIMUS
     Indication: Rash
     Dosage: UNK
     Route: 065
     Dates: start: 20210728
  20. PROTOPIC [Concomitant]
     Active Substance: TACROLIMUS
     Indication: Rash
     Dosage: UNK
     Route: 065
     Dates: start: 20210728, end: 20210729
  21. EMOVATE [Concomitant]
     Indication: Rash
     Dosage: UNK
     Route: 065
     Dates: start: 20210728, end: 20210804
  22. VALACYCLOVIR HYDROCHLORIDE [Concomitant]
     Active Substance: VALACYCLOVIR HYDROCHLORIDE
     Indication: Herpes simplex
     Dosage: 500 MG
     Route: 065
     Dates: start: 20210809, end: 20210816
  23. EUTHYROX [Concomitant]
     Active Substance: LEVOTHYROXINE SODIUM
     Indication: Hypothyroidism
     Dosage: UNK
     Route: 065
     Dates: start: 20180411
  24. LEVOTHYROXINE [Concomitant]
     Active Substance: LEVOTHYROXINE
     Indication: Hypothyroidism
     Dosage: UNK
     Route: 065
     Dates: start: 20180411
  25. METAMIZOLE [Concomitant]
     Active Substance: METAMIZOLE
     Indication: Ascites
     Dosage: UNK
     Route: 065
     Dates: start: 20210629
  26. OXYCODONE HYDROCHLORIDE [Concomitant]
     Active Substance: OXYCODONE HYDROCHLORIDE
     Indication: Ascites
     Dosage: UNK
     Route: 065
     Dates: start: 20210705
  27. LORAZEPAM [Concomitant]
     Active Substance: LORAZEPAM
     Indication: Ascites
     Dosage: UNK
     Route: 065
     Dates: start: 20210705
  28. NALOXONE HYDROCHLORIDE\OXYCODONE HYDROCHLORIDE [Concomitant]
     Active Substance: NALOXONE HYDROCHLORIDE\OXYCODONE HYDROCHLORIDE
     Indication: Product used for unknown indication
     Dosage: 5 MG/2.5 MG
     Route: 065
     Dates: start: 20210705, end: 20210712
  29. METAMUCIL [Concomitant]
     Active Substance: PLANTAGO SEED
     Indication: Product used for unknown indication
     Dosage: UNK
     Route: 065
  30. MOVICOL [Concomitant]
     Active Substance: POLYETHYLENE GLYCOL 3350\POTASSIUM CHLORIDE\SODIUM BICARBONATE\SODIUM CHLORIDE
     Indication: Product used for unknown indication
     Dosage: UNK
     Route: 065
  31. OMEPRAZOLE [Concomitant]
     Active Substance: OMEPRAZOLE
     Indication: Product used for unknown indication
     Dosage: UNK
     Route: 065
     Dates: end: 20210706
  32. PANTOPRAZOLE SODIUM [Concomitant]
     Active Substance: PANTOPRAZOLE SODIUM
     Indication: Product used for unknown indication
     Dosage: UNK
     Route: 065
     Dates: start: 20210707, end: 20210708
  33. ONDANSETRON [Concomitant]
     Active Substance: ONDANSETRON
     Indication: Product used for unknown indication
     Dosage: UNK
     Route: 065
     Dates: start: 20210705, end: 20210713
  34. GABAPENTIN [Concomitant]
     Active Substance: GABAPENTIN
     Indication: Product used for unknown indication
     Dosage: UNK
     Route: 065
     Dates: start: 20210813
  35. GABAPENTIN [Concomitant]
     Active Substance: GABAPENTIN
     Dosage: UNK
     Route: 065
     Dates: start: 20210816
  36. SODIUM CHLORIDE [Concomitant]
     Active Substance: SODIUM CHLORIDE
     Indication: Product used for unknown indication
     Dosage: UNK
     Route: 065
     Dates: start: 20210813
  37. VIBRAMYCIN [Concomitant]
     Active Substance: DOXYCYCLINE
     Indication: Rash
     Dosage: UNK
     Route: 065
     Dates: start: 20210819, end: 20210907
  38. IMAZOL [Concomitant]
     Indication: Product used for unknown indication
     Dosage: UNK
     Route: 065
     Dates: start: 20210822
  39. NALOXONE [Concomitant]
     Active Substance: NALOXONE
     Indication: Ascites
     Dosage: 5MG/2.5MG
     Route: 065
     Dates: start: 20210720, end: 20210726
  40. BETNOVATE [Concomitant]
     Active Substance: BETAMETHASONE
     Indication: Rash
     Dosage: UNK
     Route: 065
     Dates: start: 20210728
  41. ALDACTONE [Concomitant]
     Active Substance: SPIRONOLACTONE
     Indication: Product used for unknown indication
     Dosage: UNK
     Route: 065
     Dates: start: 20210705, end: 20210706
  42. ORACEA [Concomitant]
     Active Substance: DOXYCYCLINE
     Indication: Rash
     Dosage: UNK
     Route: 065
     Dates: start: 20210805, end: 20210818

REACTIONS (1)
  - Rash maculo-papular [Recovered/Resolved]

NARRATIVE: CASE EVENT DATE: 20210805
